FAERS Safety Report 20328860 (Version 1)
Quarter: 2022Q1

REPORT INFORMATION
  Report Type: Other
  Country: US (occurrence: None)
  Receive Date: 20220112
  Receipt Date: 20220112
  Transmission Date: 20220423
  Serious: Yes (Hospitalization, Other)
  Sender: FDA-Public Use
  Company Number: US-Neopharma Inc-000696

PATIENT
  Age: 2 Year
  Sex: Male

DRUGS (1)
  1. AMOXICILLIN [Suspect]
     Active Substance: AMOXICILLIN
     Indication: Otitis media acute

REACTIONS (2)
  - Drug reaction with eosinophilia and systemic symptoms [Unknown]
  - Urticaria [Not Recovered/Not Resolved]
